FAERS Safety Report 7812820-1 (Version None)
Quarter: 2011Q4

REPORT INFORMATION
  Report Type: 
  Country: None (occurrence: None)
  Receive Date: 20111013
  Receipt Date: 20111011
  Transmission Date: 20120403
  Serious: Yes (Death, Hospitalization)
  Sender: FDA-Public Use
  Company Number: US-B.I. PHARMACEUTICALS,INC./RIDGEFIELD-2011-BP-22340BP

PATIENT
  Age: 78 Year
  Sex: Male

DRUGS (6)
  1. POTASSIUM [Concomitant]
     Dosage: 20 MEQ
  2. TOPROL-XL [Concomitant]
     Dosage: 50 MG
  3. FLOMAX [Concomitant]
     Dosage: 0.4 MG
  4. PRADAXA [Suspect]
     Indication: ATRIAL FIBRILLATION
     Dosage: 300 MG
     Dates: start: 20110201, end: 20110403
  5. LISINOPRIL [Concomitant]
     Dosage: 40 MG
  6. LIPITOR [Concomitant]
     Dosage: 40 MG

REACTIONS (2)
  - LARGE INTESTINAL HAEMORRHAGE [None]
  - CARDIOVASCULAR DISORDER [None]
